FAERS Safety Report 8908028 (Version 1)
Quarter: 2012Q4

REPORT INFORMATION
  Report Type: 
  Country: EC (occurrence: EC)
  Receive Date: 20121114
  Receipt Date: 20121114
  Transmission Date: 20130627
  Serious: Yes (Death, Hospitalization)
  Sender: FDA-Public Use
  Company Number: PHHY2012EC104558

PATIENT
  Sex: Female

DRUGS (1)
  1. DIOVAN HCT [Suspect]
     Indication: HYPERTENSION
     Dosage: 1 DF (160mg vals/ 12.5mg HCT), daily
     Route: 048
     Dates: start: 20100826

REACTIONS (2)
  - Death [Fatal]
  - Respiratory arrest [Unknown]
